FAERS Safety Report 5055938-1 (Version None)
Quarter: 2006Q3

REPORT INFORMATION
  Report Type: 
  Country: None (occurrence: None)
  Receive Date: 20060717
  Receipt Date: 20060717
  Transmission Date: 20061208
  Serious: Yes (Hospitalization)
  Sender: FDA-Public Use
  Company Number: None

PATIENT
  Age: 58 Year
  Sex: Male
  Weight: 81 kg

DRUGS (2)
  1. IGIV (BAXTER) - RECONSTITUTED TO 10% [Suspect]
     Indication: IDIOPATHIC THROMBOCYTOPENIC PURPURA
     Dosage: 80 GM Q 3 WKS IV
     Route: 042
  2. SOLU-CORTEF [Concomitant]

REACTIONS (2)
  - ARTERIAL DISORDER [None]
  - CEREBRAL INFARCTION [None]
